FAERS Safety Report 24173566 (Version 1)
Quarter: 2024Q3

REPORT INFORMATION
  Report Type: Other
  Country: ES (occurrence: ES)
  Receive Date: 20240805
  Receipt Date: 20240805
  Transmission Date: 20241016
  Serious: Yes (Life-Threatening, Hospitalization, Other)
  Sender: GLENMARK
  Company Number: None

PATIENT

DRUGS (4)
  1. GABAPENTIN [Interacting]
     Active Substance: GABAPENTIN
     Indication: Radicular pain
     Dosage: 200 MILLIGRAM, OD
     Route: 048
     Dates: start: 202207, end: 20240416
  2. FENTANYL [Interacting]
     Active Substance: FENTANYL\FENTANYL CITRATE
     Indication: Intentional overdose
     Dosage: 200 MILLIGRAM, SINGLE
     Route: 062
     Dates: start: 20240416, end: 20240416
  3. RIVOTRIL [Interacting]
     Active Substance: CLONAZEPAM
     Indication: Radicular pain
     Dosage: 2 MILLIGRAM, OD
     Route: 048
     Dates: start: 201201, end: 20240416
  4. TRAMADOL HYDROCHLORIDE [Interacting]
     Active Substance: TRAMADOL HYDROCHLORIDE
     Indication: Accidental overdose
     Dosage: 200 MILLIGRAM, SINGLE
     Route: 048
     Dates: start: 20240416, end: 20240416

REACTIONS (2)
  - Depressed level of consciousness [Recovered/Resolved]
  - Drug interaction [Unknown]

NARRATIVE: CASE EVENT DATE: 20240416
